FAERS Safety Report 5626502-8 (Version None)
Quarter: 2008Q1

REPORT INFORMATION
  Report Type: 
  Country: None (occurrence: None)
  Receive Date: 20080211
  Receipt Date: 20080123
  Transmission Date: 20080703
  Serious: Yes (Hospitalization)
  Sender: FDA-Public Use
  Company Number: 2007JP004970

PATIENT
  Age: 32 Year
  Sex: Female

DRUGS (4)
  1. TACROLIMUS [Suspect]
     Indication: RHEUMATOID ARTHRITIS
     Dosage: 1.5 MG/D, ORAL
     Route: 048
     Dates: start: 20060830, end: 20060901
  2. TACROLIMUS [Suspect]
     Indication: RHEUMATOID ARTHRITIS
     Dosage: 1.5 MG/D, ORAL
     Route: 048
     Dates: start: 20061012, end: 20061024
  3. PREDNISOLONE [Concomitant]
  4. LOXONIN (LOXOPROFEN) [Concomitant]

REACTIONS (1)
  - HAEMORRHAGIC OVARIAN CYST [None]
